FAERS Safety Report 10728610 (Version 1)
Quarter: 2015Q1

REPORT INFORMATION
  Report Type: Other
  Country: US (occurrence: US)
  Receive Date: 20150122
  Receipt Date: 20150122
  Transmission Date: 20150721
  Serious: Yes (Hospitalization)
  Sender: FDA-Public Use
  Company Number: US-LUPIN PHARMACEUTICALS INC.-2014-01810

PATIENT
  Age: 59 Year
  Sex: Male

DRUGS (2)
  1. LISINOPRIL 20MG + HYDROCHLOROTHIAZIDE 25MG [Suspect]
     Active Substance: HYDROCHLOROTHIAZIDE\LISINOPRIL
     Indication: HYPERTENSION
     Route: 065
  2. NABUMETONE. [Suspect]
     Active Substance: NABUMETONE
     Indication: OSTEOARTHRITIS
     Route: 065

REACTIONS (5)
  - Metabolic acidosis [None]
  - Hypotension [None]
  - Acute kidney injury [Recovering/Resolving]
  - Renal cell carcinoma stage III [None]
  - Anaemia [None]
